FAERS Safety Report 13097872 (Version 1)
Quarter: 2017Q1

REPORT INFORMATION
  Report Type: Spontaneous
  Country: US (occurrence: US)
  Receive Date: 20170109
  Receipt Date: 20170109
  Transmission Date: 20170428
  Serious: Yes (Hospitalization)
  Sender: FDA-Public Use
  Company Number: US-GLAXOSMITHKLINE-US2017GSK001009

PATIENT
  Age: 84 Year
  Sex: Female
  Weight: 49.4 kg

DRUGS (14)
  1. COREG [Suspect]
     Active Substance: CARVEDILOL
     Indication: HEART RATE ABNORMAL
     Dosage: 3.25 MG, U
     Route: 048
     Dates: start: 2014
  2. XARELTO [Suspect]
     Active Substance: RIVAROXABAN
     Indication: CEREBROVASCULAR ACCIDENT PROPHYLAXIS
     Dosage: 15 MG, U
     Route: 048
     Dates: start: 20140228
  3. XARELTO [Suspect]
     Active Substance: RIVAROXABAN
     Indication: ATRIAL FIBRILLATION
  4. ZOCOR [Concomitant]
     Active Substance: SIMVASTATIN
  5. CORDARONE [Suspect]
     Active Substance: AMIODARONE HYDROCHLORIDE
     Indication: HEART RATE
     Dosage: 200 MG, QD
     Route: 048
     Dates: start: 2014
  6. COZAAR [Concomitant]
     Active Substance: LOSARTAN POTASSIUM
  7. ZINC SULFATE [Concomitant]
     Active Substance: ZINC SULFATE\ZINC SULFATE ANHYDROUS
  8. COREG [Suspect]
     Active Substance: CARVEDILOL
     Indication: HYPERTENSION
     Dosage: 12.5 MG, QD (6.25, 2 IN 1 DAY)
  9. COREG [Suspect]
     Active Substance: CARVEDILOL
     Indication: ARRHYTHMIA PROPHYLAXIS
  10. KEPPRA [Concomitant]
     Active Substance: LEVETIRACETAM
  11. CORDARONE [Suspect]
     Active Substance: AMIODARONE HYDROCHLORIDE
     Indication: ARRHYTHMIA
     Dosage: 200 MG, BID
     Route: 048
     Dates: start: 2014
  12. NEOSALUS CREAM [Concomitant]
  13. LASIX [Concomitant]
     Active Substance: FUROSEMIDE
  14. POTASSIUM CHLORIDE. [Concomitant]
     Active Substance: POTASSIUM CHLORIDE

REACTIONS (9)
  - Sinus bradycardia [Recovered/Resolved]
  - Dizziness [Unknown]
  - Urinary tract infection [Unknown]
  - Presyncope [Unknown]
  - Orthostatic hypotension [Unknown]
  - Condition aggravated [Unknown]
  - Hypertension [Unknown]
  - Dehydration [Unknown]
  - Drug ineffective [Unknown]

NARRATIVE: CASE EVENT DATE: 20140618
